FAERS Safety Report 7080806-3 (Version None)
Quarter: 2010Q4

REPORT INFORMATION
  Report Type: 
  Country: None (occurrence: None)
  Receive Date: 20101103
  Receipt Date: 20101025
  Transmission Date: 20110411
  Serious: Yes (Disabling)
  Sender: FDA-Public Use
  Company Number: FR-ASTRAZENECA-2010SE50671

PATIENT
  Age: 23951 Day
  Sex: Male

DRUGS (3)
  1. XYLOCAINE [Suspect]
     Route: 057
     Dates: start: 20100811
  2. KENACORT CR [Suspect]
     Route: 057
     Dates: start: 20100811
  3. ADRENALINE [Suspect]
     Route: 057
     Dates: start: 20100811

REACTIONS (2)
  - BLINDNESS UNILATERAL [None]
  - RETINAL ARTERY OCCLUSION [None]
